FAERS Safety Report 6780079-2 (Version None)
Quarter: 2010Q2

REPORT INFORMATION
  Report Type: 
  Country: None (occurrence: None)
  Receive Date: 20100618
  Receipt Date: 20100607
  Transmission Date: 20101027
  Serious: Yes (Life-Threatening, Hospitalization, Other)
  Sender: FDA-Public Use
  Company Number: GB-ELI_LILLY_AND_COMPANY-GB201003000133

PATIENT
  Sex: Male

DRUGS (1)
  1. ZYPREXA [Suspect]
     Indication: SCHIZOPHRENIA, PARANOID TYPE
     Dosage: 25 MG, DAILY (1/D)
     Route: 048

REACTIONS (5)
  - DIABETES MELLITUS [None]
  - DIABETIC KETOACIDOTIC HYPERGLYCAEMIC COMA [None]
  - OVERDOSE [None]
  - OVERWEIGHT [None]
  - SCHIZOPHRENIA [None]
